FAERS Safety Report 4881696-7 (Version None)
Quarter: 2006Q1

REPORT INFORMATION
  Report Type: 
  Country: None (occurrence: None)
  Receive Date: 20060116
  Receipt Date: 20051004
  Transmission Date: 20060701
  Serious: Yes (Hospitalization)
  Sender: FDA-Public Use
  Company Number: DE-NOVOPROD-247438

PATIENT
  Age: 71 Year
  Sex: Female
  Weight: 135 kg

DRUGS (13)
  1. LEVEMIR [Suspect]
     Indication: INSULIN-REQUIRING TYPE II DIABETES MELLITUS
     Dosage: 20 IU, QD
     Route: 058
  2. LEVEMIR [Suspect]
     Dosage: 28 IU, QD
     Route: 058
  3. LEVEMIR [Suspect]
     Dosage: 14 IU QD
     Route: 058
     Dates: start: 20041130
  4. INSUMAN RAPID                           /GFR/ [Concomitant]
     Dosage: 38 IU, QD
     Dates: start: 20001013
  5. SELECTOL [Concomitant]
     Dosage: 1 UNK, QD
  6. FUROSEMID ^DAK^ [Concomitant]
     Dosage: UNK, PRN
  7. AMLODIPINE [Concomitant]
     Dosage: 1 UNK, QD
  8. CAPTOHEXAL [Concomitant]
     Dosage: 125 UNK, TID
  9. MINIRIN ^AVENTIS PHARMA^ [Concomitant]
     Dosage: 1.5 UNK, QD
  10. L-THYROXIN ^HENNING BERLIN^ [Concomitant]
     Dosage: 100 UG, QD
     Route: 048
  11. ASS ^CT-ARZNEIMITTEL^ [Concomitant]
     Dosage: 1 UNK, QD
  12. DELMUNO [Concomitant]
     Dosage: 1 UNK, QD
  13. DIGITOXIN TAB [Concomitant]
     Dosage: 1 UNK, QD

REACTIONS (1)
  - TACHYARRHYTHMIA [None]
